FAERS Safety Report 15713578 (Version 1)
Quarter: 2018Q4

REPORT INFORMATION
  Report Type: Report from Study
  Country: CA (occurrence: CA)
  Receive Date: 20181212
  Receipt Date: 20181212
  Transmission Date: 20190205
  Serious: Yes (Hospitalization, Other)
  Sender: FDA-Public Use
  Company Number: CA-GLAXOSMITHKLINE-CA2018GSK218690

PATIENT
  Sex: Female

DRUGS (1)
  1. MEPOLIZUMAB [Suspect]
     Active Substance: MEPOLIZUMAB
     Indication: ASTHMA
     Dosage: 100 MG, Z
     Route: 042

REACTIONS (7)
  - Vomiting [Recovering/Resolving]
  - Sinus disorder [Recovering/Resolving]
  - Gastroenteritis [Unknown]
  - Hospitalisation [Unknown]
  - Malaise [Unknown]
  - Headache [Recovering/Resolving]
  - Feeding disorder [Recovering/Resolving]
